FAERS Safety Report 25766471 (Version 1)
Quarter: 2025Q3

REPORT INFORMATION
  Report Type: Spontaneous
  Country: CN (occurrence: CN)
  Receive Date: 20250905
  Receipt Date: 20250905
  Transmission Date: 20251020
  Serious: Yes (Other)
  Sender: B. BRAUN MEDICAL INC.
  Company Number: CN-B. Braun Medical Inc.-CN-BBM-202503418

PATIENT
  Age: 33 Year
  Sex: Female

DRUGS (4)
  1. CEFTRIAXONE [Suspect]
     Active Substance: CEFTRIAXONE
     Indication: Enteritis
  2. CEFTRIAXONE [Suspect]
     Active Substance: CEFTRIAXONE
     Indication: Pancreatitis
  3. SOMATOSTATIN [Concomitant]
     Active Substance: SOMATOSTATIN
  4. ENOXAPARIN [Concomitant]
     Active Substance: ENOXAPARIN

REACTIONS (2)
  - Cholecystitis [Recovered/Resolved]
  - Pseudocholelithiasis [Unknown]
